FAERS Safety Report 14879372 (Version 1)
Quarter: 2018Q2

REPORT INFORMATION
  Report Type: Spontaneous
  Country: US (occurrence: US)
  Receive Date: 20180511
  Receipt Date: 20180511
  Transmission Date: 20180711
  Serious: No
  Sender: FDA-Public Use
  Company Number: US-PFIZER INC-2018191629

PATIENT
  Age: 29 Year
  Sex: Female

DRUGS (1)
  1. EUCRISA [Suspect]
     Active Substance: CRISABOROLE
     Indication: SKIN DISORDER
     Dosage: UNK, APPLY THIN FILM TWICE A DAY
     Route: 061
     Dates: start: 201804, end: 201804

REACTIONS (2)
  - Drug ineffective [Unknown]
  - Application site pain [Unknown]
